FAERS Safety Report 25919157 (Version 1)
Quarter: 2025Q4

REPORT INFORMATION
  Report Type: Spontaneous
  Country: US (occurrence: US)
  Receive Date: 20251014
  Receipt Date: 20251014
  Transmission Date: 20260118
  Serious: No
  Sender: BAYER HEALTHCARE LLC
  Company Number: US-BAYER-2025A133972

PATIENT
  Age: 52 Year
  Sex: Female

DRUGS (1)
  1. MIRALAX [Suspect]
     Active Substance: POLYETHYLENE GLYCOL 3350
     Indication: Colonic lavage
     Dosage: 500 ML INITIATED VIA NG TUBE
     Route: 045

REACTIONS (2)
  - Product use in unapproved indication [None]
  - Incorrect route of product administration [None]
